FAERS Safety Report 7909052-5 (Version None)
Quarter: 2011Q4

REPORT INFORMATION
  Report Type: 
  Country: None (occurrence: None)
  Receive Date: 20111111
  Receipt Date: 20111107
  Transmission Date: 20120403
  Serious: Yes (Hospitalization, Other)
  Sender: FDA-Public Use
  Company Number: US-TEVA-308374USA

PATIENT
  Age: 65 Year
  Sex: Female

DRUGS (6)
  1. VENLAFAXINE [Suspect]
  2. INSULIN [Suspect]
     Route: 040
  3. AMITRIPTYLINE HCL [Suspect]
  4. ESCITALOPRAM [Suspect]
  5. QUINAPRIL [Suspect]
  6. ATENOLOL [Suspect]

REACTIONS (5)
  - CARDIOGENIC SHOCK [None]
  - HYPOKALAEMIA [None]
  - MULTIPLE DRUG OVERDOSE [None]
  - OVERDOSE [None]
  - HYPOGLYCAEMIA [None]
